FAERS Safety Report 9370054 (Version 2)
Quarter: 2013Q3

REPORT INFORMATION
  Report Type: Spontaneous
  Country: US (occurrence: US)
  Receive Date: 20130626
  Receipt Date: 20130821
  Transmission Date: 20140515
  Serious: Yes (Other)
  Sender: FDA-Public Use
  Company Number: US-ELI_LILLY_AND_COMPANY-US201306005059

PATIENT
  Sex: Female

DRUGS (5)
  1. CYMBALTA [Suspect]
     Indication: ANXIETY
     Dosage: 30 MG, QD
     Route: 065
     Dates: start: 20130601, end: 20130611
  2. CYMBALTA [Suspect]
     Indication: PAIN
  3. PHENOBARBITAL [Concomitant]
     Indication: HEADACHE
     Dosage: UNK, UNKNOWN
     Route: 065
  4. GABAPENTIN [Concomitant]
     Dosage: UNK, UNKNOWN
     Route: 065
  5. MOBIC [Concomitant]
     Dosage: UNK, UNKNOWN
     Route: 065

REACTIONS (3)
  - Blood blister [Not Recovered/Not Resolved]
  - Local swelling [Not Recovered/Not Resolved]
  - Laceration [Not Recovered/Not Resolved]
